FAERS Safety Report 7515593-5 (Version None)
Quarter: 2011Q2

REPORT INFORMATION
  Report Type: 
  Country: None (occurrence: None)
  Receive Date: 20110601
  Receipt Date: 20110523
  Transmission Date: 20111010
  Serious: Yes (Hospitalization)
  Sender: FDA-Public Use
  Company Number: US-ASTRAZENECA-2011SE31911

PATIENT
  Sex: Female

DRUGS (1)
  1. NEXIUM [Suspect]
     Route: 048

REACTIONS (7)
  - STAPHYLOCOCCAL INFECTION [None]
  - HIP ARTHROPLASTY [None]
  - ARTERIAL STENOSIS [None]
  - LOWER LIMB FRACTURE [None]
  - ARTHRITIS [None]
  - SURGERY [None]
  - SPINAL FUSION SURGERY [None]
